FAERS Safety Report 24212617 (Version 2)
Quarter: 2024Q3

REPORT INFORMATION
  Report Type: Spontaneous
  Country: JP (occurrence: JP)
  Receive Date: 20240815
  Receipt Date: 20240905
  Transmission Date: 20241017
  Serious: No
  Sender: GILEAD
  Company Number: JP-GILEAD-2024-0683593

PATIENT
  Sex: Female
  Weight: 53 kg

DRUGS (2)
  1. VEKLURY [Suspect]
     Active Substance: REMDESIVIR
     Indication: COVID-19 pneumonia
     Dosage: 200 MG
     Route: 041
     Dates: start: 20240731, end: 20240731
  2. VEKLURY [Suspect]
     Active Substance: REMDESIVIR
     Dosage: 100 MG
     Route: 041
     Dates: start: 20240801, end: 20240809

REACTIONS (1)
  - Blood pressure decreased [Unknown]
